FAERS Safety Report 23579880 (Version 1)
Quarter: 2024Q1

REPORT INFORMATION
  Report Type: Spontaneous
  Country: US (occurrence: US)
  Receive Date: 20240229
  Receipt Date: 20240229
  Transmission Date: 20240410
  Serious: No
  Sender: FDA-Public Use
  Company Number: US-GSK-US2024023222

PATIENT
  Sex: Female

DRUGS (1)
  1. NUCALA [Suspect]
     Active Substance: MEPOLIZUMAB
     Indication: Asthma
     Dosage: 100 MG, Q4W (AUTO INJECTION)
     Dates: start: 2023

REACTIONS (2)
  - Asthma prophylaxis [Not Recovered/Not Resolved]
  - Asthma [Not Recovered/Not Resolved]
